FAERS Safety Report 24901165 (Version 1)
Quarter: 2025Q1

REPORT INFORMATION
  Report Type: Spontaneous
  Country: KR (occurrence: KR)
  Receive Date: 20250129
  Receipt Date: 20250129
  Transmission Date: 20250409
  Serious: Yes (Other)
  Sender: BIOCRYST PHARMACEUTICALS
  Company Number: KR-BIOCRYST PHARMACEUTICALS, INC.-2025BCR00110

PATIENT

DRUGS (1)
  1. PERAMIVIR [Suspect]
     Active Substance: PERAMIVIR
     Indication: Influenza
     Route: 042
     Dates: start: 20250119, end: 20250119

REACTIONS (1)
  - Hallucination [Unknown]

NARRATIVE: CASE EVENT DATE: 20250119
